FAERS Safety Report 12198797 (Version 1)
Quarter: 2016Q1

REPORT INFORMATION
  Report Type: Spontaneous
  Country: US (occurrence: None)
  Receive Date: 20160321
  Receipt Date: 20160321
  Transmission Date: 20160526
  Serious: Yes (Disabling)
  Sender: FDA-Public Use
  Company Number: None

PATIENT
  Age: 31 Year
  Sex: Female
  Weight: 58.97 kg

DRUGS (6)
  1. TACROLIMUS .1% [Suspect]
     Active Substance: TACROLIMUS
     Indication: RASH
     Dosage: SPREAD THINLY ON AFFECTED AREA TWICE DAILY APPLIED TO A SURFACE, USUALLY THE SKIN
     Route: 061
     Dates: start: 20151119, end: 20160114
  2. VITAMIN D [Concomitant]
     Active Substance: CHOLECALCIFEROL
  3. FISH OIL [Concomitant]
     Active Substance: FISH OIL
  4. VITAMINS E [Concomitant]
  5. CLOBETASOL PROPIONATE .05% [Suspect]
     Active Substance: CLOBETASOL PROPIONATE
     Indication: DERMATITIS CONTACT
     Dosage: SPREAD THINLY ON AFFECTED AREA TWICE DAILY APPLIED TO A SURFACE, USUALLY THE SKIN
     Route: 061
     Dates: start: 20150608, end: 20150820
  6. PHYTOCERAMIDES [Concomitant]

REACTIONS (8)
  - Drug withdrawal syndrome [None]
  - Burning sensation [None]
  - Pain [None]
  - Skin fissures [None]
  - Skin disorder [None]
  - Haemorrhage [None]
  - Skin irritation [None]
  - Lymphorrhoea [None]

NARRATIVE: CASE EVENT DATE: 20150608
